FAERS Safety Report 23378271 (Version 1)
Quarter: 2024Q1

REPORT INFORMATION
  Report Type: Spontaneous
  Country: CA (occurrence: CA)
  Receive Date: 20240108
  Receipt Date: 20240108
  Transmission Date: 20240410
  Serious: Yes (Life-Threatening, Hospitalization, Other)
  Sender: FDA-Public Use
  Company Number: CA-PFIZER INC-202400004007

PATIENT
  Age: 12 Year
  Sex: Male

DRUGS (5)
  1. CYTARABINE [Suspect]
     Active Substance: CYTARABINE
     Dosage: UNK
     Route: 042
  2. CYTARABINE [Suspect]
     Active Substance: CYTARABINE
     Dosage: UNK, 1X/DAY
     Route: 042
  3. RITUXIMAB [Suspect]
     Active Substance: RITUXIMAB
     Indication: Burkitt^s lymphoma
     Dosage: 650 MG, SINGLE
     Route: 042
  4. ETOPOSIDE [Suspect]
     Active Substance: ETOPOSIDE
     Indication: Burkitt^s lymphoma
     Dosage: 336 MG, 1X/DAY
     Route: 042
  5. GABAPENTIN [Concomitant]
     Active Substance: GABAPENTIN

REACTIONS (2)
  - Febrile neutropenia [Recovered/Resolved]
  - Off label use [Unknown]
